FAERS Safety Report 10334393 (Version 1)
Quarter: 2014Q3

REPORT INFORMATION
  Report Type: Spontaneous
  Country: JP (occurrence: None)
  Receive Date: 20140721
  Receipt Date: 20140721
  Transmission Date: 20150326
  Serious: Yes (Other)
  Sender: FDA-Public Use
  Company Number: AE-SPE-2014-026

PATIENT
  Age: 33 Year
  Sex: Female

DRUGS (1)
  1. MEIACT MS (CEFDITOREN PIVOXIL) (NOT SPECIFIED) [Suspect]
     Active Substance: CEFDITOREN PIVOXIL
     Route: 048
     Dates: start: 201111, end: 201111

REACTIONS (1)
  - Drug-induced liver injury [None]
